FAERS Safety Report 4992541-3 (Version None)
Quarter: 2006Q1

REPORT INFORMATION
  Report Type: 
  Country: None (occurrence: None)
  Receive Date: 20060314
  Receipt Date: 20060131
  Transmission Date: 20060701
  Serious: No
  Sender: FDA-Public Use
  Company Number: 2006-00202

PATIENT
  Age: 75 Year
  Sex: Female
  Weight: 53.5 kg

DRUGS (4)
  1. VELCADE [Suspect]
     Indication: MULTIPLE MYELOMA
     Dosage: 2.10 MG, INTRAVENOUS
     Route: 042
     Dates: start: 20030901
  2. DECADRON SRC [Concomitant]
  3. CALCIUM (CALCIUM) [Concomitant]
  4. MAGNESIUM (MAGNESIUM) [Concomitant]

REACTIONS (7)
  - ABDOMINAL PAIN UPPER [None]
  - BLOOD POTASSIUM INCREASED [None]
  - CONSTIPATION [None]
  - DIARRHOEA [None]
  - FATIGUE [None]
  - MALAISE [None]
  - NEUROPATHY PERIPHERAL [None]
